FAERS Safety Report 20003876 (Version 1)
Quarter: 2021Q4

REPORT INFORMATION
  Report Type: Spontaneous
  Country: US (occurrence: US)
  Receive Date: 20211028
  Receipt Date: 20211028
  Transmission Date: 20220303
  Serious: No
  Sender: FDA-Public Use
  Company Number: US-ELI_LILLY_AND_COMPANY-US202110000585

PATIENT
  Sex: Female
  Weight: 72.56 kg

DRUGS (1)
  1. TRULICITY [Suspect]
     Active Substance: DULAGLUTIDE
     Indication: Diabetes mellitus
     Dosage: 0.75 MG, UNKNOWN
     Route: 065
     Dates: start: 2020, end: 202108

REACTIONS (7)
  - Pollakiuria [Unknown]
  - Visual impairment [Unknown]
  - Urinary incontinence [Unknown]
  - Dry mouth [Unknown]
  - Thirst [Unknown]
  - Urine abnormality [Unknown]
  - Polydipsia [Unknown]
